FAERS Safety Report 14676294 (Version 1)
Quarter: 2018Q1

REPORT INFORMATION
  Report Type: Spontaneous
  Country: US (occurrence: US)
  Receive Date: 20180323
  Receipt Date: 20180323
  Transmission Date: 20180509
  Serious: No
  Sender: FDA-Public Use
  Company Number: US-AKRON, INC.-2044450

PATIENT
  Sex: Female

DRUGS (1)
  1. THERATEARS LUBRICANT EYE DROPS [Suspect]
     Active Substance: CARBOXYMETHYLCELLULOSE SODIUM
     Indication: DRY EYE
     Route: 047

REACTIONS (10)
  - Poor quality sleep [Recovered/Resolved]
  - Eye pain [Not Recovered/Not Resolved]
  - Pain [Recovered/Resolved]
  - Corneal abrasion [Not Recovered/Not Resolved]
  - Eye irritation [Recovered/Resolved]
  - Corneal perforation [Not Recovered/Not Resolved]
  - Dry eye [Not Recovered/Not Resolved]
  - Lacrimation increased [Recovered/Resolved]
  - Instillation site foreign body sensation [Recovered/Resolved]
  - Foreign body in eye [Not Recovered/Not Resolved]
